FAERS Safety Report 18503803 (Version 2)
Quarter: 2024Q3

REPORT INFORMATION
  Report Type: Spontaneous
  Country: DE (occurrence: DE)
  Receive Date: 20201113
  Receipt Date: 20240712
  Transmission Date: 20241016
  Serious: Yes (Other)
  Sender: PFIZER
  Company Number: DE-ROCHE-2422879

PATIENT
  Age: 70 Year
  Sex: Male
  Weight: 66 kg

DRUGS (18)
  1. ADCETRIS [Suspect]
     Active Substance: BRENTUXIMAB VEDOTIN
     Indication: Diffuse large B-cell lymphoma
     Dosage: 1.8 MG/KG (5TH LINE TREATMENT, 4 CYCLES)
     Route: 065
     Dates: start: 201905, end: 201909
  2. DOXORUBICIN HYDROCHLORIDE [Suspect]
     Active Substance: DOXORUBICIN HYDROCHLORIDE
     Indication: Diffuse large B-cell lymphoma
     Dosage: 1ST LINE THERAPY ACCORDING TO R-CHOP REGIMEN, 6 CYCLES, AND 2 CYCLES OF RITUXIMAB AS MONOTHERAPY)
     Route: 065
     Dates: start: 200910, end: 201002
  3. GEMCITABINE HYDROCHLORIDE [Suspect]
     Active Substance: GEMCITABINE HYDROCHLORIDE
     Indication: Diffuse large B-cell lymphoma
     Dosage: UNK
     Route: 065
     Dates: start: 201512, end: 201602
  4. METHOTREXATE SODIUM [Suspect]
     Active Substance: METHOTREXATE SODIUM
     Indication: Diffuse large B-cell lymphoma
     Dosage: (4TH CYCLE OF TREATMENT ACCORDING TO R-IMVP-16 REGIMEN, 5 CYCLES (IFOSFAMIDE 75%)
     Route: 065
     Dates: start: 201811, end: 201902
  5. VINCRISTINE SULFATE [Suspect]
     Active Substance: VINCRISTINE SULFATE
     Indication: Diffuse large B-cell lymphoma
     Dosage: (1ST LINE THERAPY ACCORDING TO R-CHOP REGIMEN, 6 CYCLES, AND 2 CYCLES OF RITUXIMAB ASMONOTHERAPY)
     Route: 065
     Dates: start: 200910, end: 201002
  6. CYTARABINE [Suspect]
     Active Substance: CYTARABINE
     Indication: Diffuse large B-cell lymphoma
     Dosage: (3RD LINE THERAPY ACCORDING TO HD BEAM REGIMEN WITH AUTO SCT, 1 CYCLE)
     Route: 065
     Dates: start: 201604
  7. CYCLOPHOSPHAMIDE [Suspect]
     Active Substance: CYCLOPHOSPHAMIDE
     Indication: Diffuse large B-cell lymphoma
     Dosage: (1ST LINE THERAPY ACCORDING TO R-CHOP REGIMEN, 6 CYCLES, AND 2 CYCLES OF RITUXIMAB AS MONOTHERAPY)
     Route: 065
     Dates: start: 200910, end: 201002
  8. CISPLATIN [Suspect]
     Active Substance: CISPLATIN
     Indication: Diffuse large B-cell lymphoma
     Dosage: (2ND LINE THERAPY ACCORDING TO R-GDP REGIMEN, 4 CYCLES)
     Route: 065
     Dates: start: 201512, end: 201602
  9. DEXAMETHASONE [Suspect]
     Active Substance: DEXAMETHASONE
     Indication: Diffuse large B-cell lymphoma
     Dosage: (2ND LINE THERAPY ACCORDING TO R-GDP REGIMEN, 4 CYCLES)
     Route: 065
     Dates: start: 201512, end: 201602
  10. ETOPOSIDE [Suspect]
     Active Substance: ETOPOSIDE
     Indication: Diffuse large B-cell lymphoma
     Dosage: UNK
     Route: 065
     Dates: start: 201811, end: 201902
  11. IFOSFAMIDE [Suspect]
     Active Substance: IFOSFAMIDE
     Indication: Diffuse large B-cell lymphoma
     Dosage: (4TH CYCLE OF TREATMENT ACCORDING TO R-IMVP-16 REGIMEN, 5 CYCLES (IFOSFAMIDE 75%))
     Route: 065
     Dates: start: 201811, end: 201902
  12. MELPHALAN [Suspect]
     Active Substance: MELPHALAN
     Indication: Diffuse large B-cell lymphoma
     Dosage: (3RD LINE THERAPY ACCORDING TO HD BEAM REGIMEN WITH AUTO SCT, 1 CYCLE)
     Route: 065
     Dates: start: 201604
  13. PREDNISONE [Suspect]
     Active Substance: PREDNISONE
     Indication: Diffuse large B-cell lymphoma
     Dosage: (1ST LINE THERAPY ACCORDING TO R-CHOP REGIMEN, 6 CYCLES, AND 2 CYCLES OF RITUXIMAB ASMONOTHERAPY)
     Route: 065
     Dates: start: 201002, end: 201002
  14. CARMUSTINE [Suspect]
     Active Substance: CARMUSTINE
     Indication: Diffuse large B-cell lymphoma
     Dosage: (3RD LINE THERAPY ACCORDING TO HD BEAM REGIMEN WITH AUTO SCT, 1 CYCLE)
     Route: 065
     Dates: start: 201604
  15. ETOPOSIDE [Suspect]
     Active Substance: ETOPOSIDE
     Indication: Diffuse large B-cell lymphoma
     Dosage: (3RD LINE THERAPY ACCORDING TO HD BEAM REGIMEN WITH AUTO SCT, 1 CYCLE)
     Route: 065
     Dates: start: 201604
  16. MABTHERA [Suspect]
     Active Substance: RITUXIMAB
     Indication: Diffuse large B-cell lymphoma
     Dosage: (1ST LINE THERAPY ACCORDING TO R-CHOP REGIMEN, 6 CYCLES, AND 2 CYCLES OF RITUXIMAB AS MONOTHERAPY)
     Route: 065
     Dates: start: 200910, end: 201002
  17. MABTHERA [Suspect]
     Active Substance: RITUXIMAB
     Dosage: (2ND LINE THERAPY ACCORDING TO R-GDP REGIMEN, 4 CYCLES)
     Route: 065
     Dates: start: 201512, end: 201602
  18. MABTHERA [Suspect]
     Active Substance: RITUXIMAB
     Dosage: (4TH CYCLE OF TREATMENT ACCORDING TO R-IMVP-16 REGIMEN, 5 CYCLES)
     Route: 065
     Dates: start: 201811, end: 201902

REACTIONS (3)
  - Pancytopenia [Unknown]
  - Second primary malignancy [Unknown]
  - Adenocarcinoma gastric [Unknown]

NARRATIVE: CASE EVENT DATE: 20100201
